FAERS Safety Report 18806826 (Version 1)
Quarter: 2021Q1

REPORT INFORMATION
  Report Type: Spontaneous
  Country: US (occurrence: US)
  Receive Date: 20210128
  Receipt Date: 20210128
  Transmission Date: 20210419
  Serious: Yes (Other)
  Sender: FDA-Public Use
  Company Number: None

PATIENT
  Age: 34 Year
  Sex: Female
  Weight: 114.75 kg

DRUGS (2)
  1. FAMOTIDINE 20MG [Suspect]
     Active Substance: FAMOTIDINE
     Indication: GASTROOESOPHAGEAL REFLUX DISEASE
     Dates: start: 20200815, end: 20210125
  2. ALEVE [Concomitant]
     Active Substance: NAPROXEN SODIUM

REACTIONS (12)
  - Dyspnoea [None]
  - Back pain [None]
  - Therapy cessation [None]
  - Insomnia [None]
  - Dry mouth [None]
  - Cough [None]
  - Dysphagia [None]
  - Headache [None]
  - Vomiting [None]
  - Anxiety [None]
  - Diarrhoea [None]
  - Dizziness [None]

NARRATIVE: CASE EVENT DATE: 20210127
